FAERS Safety Report 15272584 (Version 1)
Quarter: 2018Q3

REPORT INFORMATION
  Report Type: Spontaneous
  Country: CH (occurrence: CH)
  Receive Date: 20180813
  Receipt Date: 20180813
  Transmission Date: 20181010
  Serious: Yes (Other)
  Sender: FDA-Public Use
  Company Number: PHHY2018CH066225

PATIENT
  Age: 70 Year
  Sex: Female

DRUGS (1)
  1. ZOLPIDEM [Suspect]
     Active Substance: ZOLPIDEM\ZOLPIDEM TARTRATE
     Indication: INSOMNIA
     Dosage: 120 DF (1,200 MG/D), QD
     Route: 065

REACTIONS (3)
  - Drug tolerance [Unknown]
  - Intentional product misuse [Unknown]
  - Drug ineffective [Unknown]
